FAERS Safety Report 9014438 (Version 2)
Quarter: 2013Q1

REPORT INFORMATION
  Report Type: Spontaneous
  Country: US (occurrence: US)
  Receive Date: 20130115
  Receipt Date: 20130123
  Transmission Date: 20140127
  Serious: Yes (Death)
  Sender: FDA-Public Use
  Company Number: US-JNJFOC-20130104702

PATIENT
  Age: 49 Year
  Sex: Female

DRUGS (5)
  1. TRAMADOL [Suspect]
     Indication: SUICIDE ATTEMPT
     Route: 048
  2. OPIOIDS [Suspect]
     Indication: SUICIDE ATTEMPT
     Route: 048
  3. TRAZODONE HYDROCHLORIDE [Suspect]
     Indication: SUICIDE ATTEMPT
     Route: 048
  4. LAXATIVE [Suspect]
     Indication: SUICIDE ATTEMPT
     Route: 048
  5. TRICYCLIC ANTIDEPRESSANT [Suspect]
     Indication: SUICIDE ATTEMPT
     Route: 048

REACTIONS (1)
  - Toxicity to various agents [Fatal]
